FAERS Safety Report 8609598-0 (Version None)
Quarter: 2012Q3

REPORT INFORMATION
  Report Type: 
  Country: None (occurrence: None)
  Receive Date: 20120821
  Receipt Date: 20120813
  Transmission Date: 20120928
  Serious: No
  Sender: FDA-Public Use
  Company Number: US-ASTRAZENECA-2012SE57034

PATIENT
  Age: 81 Year
  Sex: Male
  Weight: 93 kg

DRUGS (19)
  1. CARVEDILOL [Concomitant]
  2. FIBER [Concomitant]
  3. PRILOSEC [Suspect]
     Route: 048
  4. ASPIRIN [Concomitant]
  5. CITRIX MD [Concomitant]
  6. BUCIMEX [Concomitant]
  7. PRILOSEC [Suspect]
     Indication: GASTROOESOPHAGEAL REFLUX DISEASE
     Route: 048
     Dates: start: 20020101
  8. CRESTOR [Suspect]
     Route: 048
  9. ENALAPRIL MALEATE [Concomitant]
  10. GLUCOSAMINE [Concomitant]
  11. AMLODIPINE [Concomitant]
  12. POTASSIUM CHLORIDE [Concomitant]
  13. HYDROCODONE [Concomitant]
     Indication: ARTHRITIS
  14. VITAMIN D [Concomitant]
  15. LEVOXYAL [Concomitant]
     Indication: THYROID DISORDER
  16. CLONIDINE [Concomitant]
  17. FLEXAMIN [Concomitant]
  18. MULTI-VITAMIN [Concomitant]
  19. CALCIUM [Concomitant]

REACTIONS (6)
  - DYSPNOEA EXERTIONAL [None]
  - DRUG DOSE OMISSION [None]
  - NAUSEA [None]
  - DYSPEPSIA [None]
  - FATIGUE [None]
  - HYPERCHLORHYDRIA [None]
